FAERS Safety Report 10179112 (Version 1)
Quarter: 2014Q2

REPORT INFORMATION
  Report Type: Spontaneous
  Country: US (occurrence: None)
  Receive Date: 20140516
  Receipt Date: 20140516
  Transmission Date: 20141212
  Serious: Yes (Life-Threatening, Hospitalization)
  Sender: FDA-Public Use
  Company Number: None

PATIENT
  Age: 88 Year
  Sex: Male
  Weight: 96.16 kg

DRUGS (7)
  1. SPIRONOLACTONE 25 MG TABLET RX NUMBER 05351 0646009 [Suspect]
     Indication: HYPERTENSION
     Dosage: 25MG.?1/2 PILL DAILY WITH FOOD ?AM WITH FOOD?BY MOUTH
     Route: 048
     Dates: start: 20140411, end: 20140427
  2. BABY ASPIRIN [Concomitant]
  3. CARVEDILOL (COREG) [Concomitant]
  4. ISOSORBIDE (IMDUR) [Concomitant]
  5. FUROSEMIDE (LASIX) [Concomitant]
  6. LIVALO [Concomitant]
  7. CEPHALEXIN [Concomitant]

REACTIONS (9)
  - Constipation [None]
  - Malaise [None]
  - Abasia [None]
  - Discomfort [None]
  - Dizziness [None]
  - Thirst [None]
  - Chromaturia [None]
  - Abdominal discomfort [None]
  - Dysuria [None]
